FAERS Safety Report 4384926-3 (Version None)
Quarter: 2004Q2

REPORT INFORMATION
  Report Type: 
  Country: None (occurrence: None)
  Receive Date: 20040621
  Receipt Date: 20040610
  Transmission Date: 20050107
  Serious: Yes (Hospitalization)
  Sender: FDA-Public Use
  Company Number: US-JNJFOC-20040602987

PATIENT
  Age: 74 Year
  Sex: Female

DRUGS (1)
  1. DURAGESIC [Suspect]
     Indication: PAIN
     Dosage: 1 IN 72 HOUR, TRANSDERMAL
     Route: 062
     Dates: start: 20040413, end: 20040501

REACTIONS (3)
  - COMA [None]
  - CONFUSIONAL STATE [None]
  - HEART RATE IRREGULAR [None]
